FAERS Safety Report 21068530 (Version 1)
Quarter: 2022Q3

REPORT INFORMATION
  Report Type: Spontaneous
  Country: US (occurrence: None)
  Receive Date: 20220711
  Receipt Date: 20220711
  Transmission Date: 20221027
  Serious: No
  Sender: FDA-Public Use
  Company Number: None

PATIENT
  Age: 56 Year
  Sex: Female

DRUGS (1)
  1. AUBAGIO [Suspect]
     Active Substance: TERIFLUNOMIDE
     Dosage: 14MG DAILLY ORAL?
     Route: 048
     Dates: start: 20220701

REACTIONS (3)
  - Headache [None]
  - Fatigue [None]
  - Therapy interrupted [None]

NARRATIVE: CASE EVENT DATE: 20220701
